FAERS Safety Report 7530947-9 (Version None)
Quarter: 2011Q2

REPORT INFORMATION
  Report Type: 
  Country: None (occurrence: None)
  Receive Date: 20110608
  Receipt Date: 20110518
  Transmission Date: 20111010
  Serious: No
  Sender: FDA-Public Use
  Company Number: US-ROXANE LABORATORIES, INC.-2011-RO-00753RO

PATIENT

DRUGS (8)
  1. PREDNISONE [Suspect]
     Dates: start: 20110517
  2. DIPHENHYDRAMINE HCL [Concomitant]
  3. MEGACE [Concomitant]
  4. LORATADINE [Concomitant]
  5. ASPIRIN [Concomitant]
  6. ALPRAZOLAM [Concomitant]
  7. WELLBUTRIN [Concomitant]
  8. COLACE [Concomitant]

REACTIONS (1)
  - RASH [None]
